FAERS Safety Report 14318613 (Version 2)
Quarter: 2018Q1

REPORT INFORMATION
  Report Type: Spontaneous
  Country: US (occurrence: US)
  Receive Date: 20171222
  Receipt Date: 20180109
  Transmission Date: 20180509
  Serious: Yes (Other)
  Sender: FDA-Public Use
  Company Number: US-ABBVIE-17P-163-2199038-00

PATIENT
  Sex: Female

DRUGS (4)
  1. SYNTHROID [Suspect]
     Active Substance: LEVOTHYROXINE SODIUM
     Indication: HYPOTHYROIDISM
     Route: 048
  2. CALCIUM [Concomitant]
     Active Substance: CALCIUM
     Indication: PRODUCT USED FOR UNKNOWN INDICATION
  3. LEVOTHYROXINE. [Suspect]
     Active Substance: LEVOTHYROXINE
     Indication: HYPOTHYROIDISM
     Route: 048
  4. MULTIVITAMIN WITH IRON [Concomitant]
     Active Substance: IRON\VITAMINS
     Indication: PRODUCT USED FOR UNKNOWN INDICATION

REACTIONS (13)
  - Insomnia [Not Recovered/Not Resolved]
  - Abortion spontaneous [Unknown]
  - Fibromyalgia [Unknown]
  - Onychoclasis [Not Recovered/Not Resolved]
  - Thyroidectomy [Unknown]
  - Headache [Not Recovered/Not Resolved]
  - Foetal death [Unknown]
  - Irritability [Not Recovered/Not Resolved]
  - Fatigue [Recovered/Resolved]
  - Exposure during pregnancy [Unknown]
  - Decreased appetite [Not Recovered/Not Resolved]
  - Osteoporosis [Not Recovered/Not Resolved]
  - Nervousness [Not Recovered/Not Resolved]

NARRATIVE: CASE EVENT DATE: 1976
